FAERS Safety Report 4355860-X (Version None)
Quarter: 2004Q2

REPORT INFORMATION
  Report Type: 
  Country: None (occurrence: None)
  Receive Date: 20040510
  Receipt Date: 20040510
  Transmission Date: 20050107
  Serious: Yes (Other)
  Sender: FDA-Public Use
  Company Number: None

PATIENT
  Age: 42 Year
  Sex: Male
  Weight: 65.7716 kg

DRUGS (2)
  1. PAXIL CR [Suspect]
     Indication: MIGRAINE
     Dosage: ONE PER DAY ORAL
     Route: 048
     Dates: start: 20031101, end: 20040509
  2. PAXIL CR [Suspect]
     Indication: MOOD SWINGS
     Dosage: ONE PER DAY ORAL
     Route: 048
     Dates: start: 20031101, end: 20040509

REACTIONS (9)
  - COORDINATION ABNORMAL [None]
  - CRYING [None]
  - DEPRESSION [None]
  - DRUG WITHDRAWAL SYNDROME [None]
  - EMOTIONAL DISORDER [None]
  - FEELINGS OF WORTHLESSNESS [None]
  - IMPAIRED WORK ABILITY [None]
  - VISUAL DISTURBANCE [None]
  - WEIGHT INCREASED [None]
